FAERS Safety Report 11362540 (Version 1)
Quarter: 2015Q3

REPORT INFORMATION
  Report Type: Report from Study
  Country: PL (occurrence: PL)
  Receive Date: 20150810
  Receipt Date: 20150810
  Transmission Date: 20151125
  Serious: Yes (Hospitalization, Other)
  Sender: FDA-Public Use
  Company Number: PHHY2015PL092718

PATIENT
  Age: 68 Year
  Sex: Female

DRUGS (1)
  1. SANDOSTATIN LAR DEPOT [Suspect]
     Active Substance: OCTREOTIDE ACETATE
     Indication: ACROMEGALY
     Route: 065

REACTIONS (13)
  - Atrioventricular block complete [Unknown]
  - Bradycardia [Unknown]
  - Tricuspid valve incompetence [Unknown]
  - Mitral valve incompetence [Unknown]
  - Aortic valve incompetence [Unknown]
  - Goitre [Unknown]
  - Erythropoiesis abnormal [Unknown]
  - Malabsorption [Unknown]
  - Iron deficiency anaemia [Unknown]
  - Endometrial cancer [Unknown]
  - Atrial fibrillation [Unknown]
  - Pulmonary valve incompetence [Unknown]
  - Pulmonary hypertension [Unknown]

NARRATIVE: CASE EVENT DATE: 2011
